FAERS Safety Report 6074483-8 (Version None)
Quarter: 2009Q1

REPORT INFORMATION
  Report Type: 
  Country: None (occurrence: None)
  Receive Date: 20090206
  Receipt Date: 20090126
  Transmission Date: 20090719
  Serious: Yes (Death, Life-Threatening, Hospitalization)
  Sender: FDA-Public Use
  Company Number: 2006-00870

PATIENT
  Age: 49 Year
  Sex: Male
  Weight: 64 kg

DRUGS (2)
  1. VELCADE [Suspect]
     Indication: NON-HODGKIN'S LYMPHOMA STAGE IV
     Dosage: 3.00 MG, INTRAVENOUS
     Route: 042
     Dates: start: 20060327, end: 20060327
  2. RITUXIMAB(RITUXIMAB) SOLUTION (EXCEPT SYRUP) [Suspect]
     Indication: DRUG USE FOR UNKNOWN INDICATION
     Dates: start: 20060327

REACTIONS (6)
  - ASCITES [None]
  - DYSPNOEA [None]
  - GENERAL PHYSICAL HEALTH DETERIORATION [None]
  - NEOPLASM PROGRESSION [None]
  - OLIGURIA [None]
  - RENAL FAILURE ACUTE [None]
